FAERS Safety Report 15662295 (Version 7)
Quarter: 2019Q4

REPORT INFORMATION
  Report Type: Report from Study
  Country: AU (occurrence: AU)
  Receive Date: 20181127
  Receipt Date: 20191107
  Transmission Date: 20200122
  Serious: Yes (Hospitalization, Other)
  Sender: FDA-Public Use
  Company Number: AU-EISAI MEDICAL RESEARCH-EC-2018-046727

PATIENT
  Age: 69 Year
  Sex: Female
  Weight: 89.2 kg

DRUGS (9)
  1. MOVICHOL [Concomitant]
  2. LENVATINIB [Suspect]
     Active Substance: LENVATINIB
     Route: 048
     Dates: start: 20190213, end: 20190527
  3. LENVATINIB [Suspect]
     Active Substance: LENVATINIB
     Route: 048
     Dates: start: 20190603, end: 20190818
  4. DULCOLAX DROPS [Concomitant]
  5. LENVATINIB [Suspect]
     Active Substance: LENVATINIB
     Indication: METASTATIC RENAL CELL CARCINOMA
     Route: 048
     Dates: start: 20181017, end: 20181020
  6. LENVATINIB [Suspect]
     Active Substance: LENVATINIB
     Route: 048
     Dates: start: 20181217, end: 20190120
  7. LENVATINIB [Suspect]
     Active Substance: LENVATINIB
     Route: 048
     Dates: start: 20181023, end: 20181122
  8. PEMBROLIZUMAB. [Suspect]
     Active Substance: PEMBROLIZUMAB
     Indication: METASTATIC RENAL CELL CARCINOMA
     Route: 041
     Dates: start: 20181017, end: 201811
  9. PEMBROLIZUMAB. [Suspect]
     Active Substance: PEMBROLIZUMAB
     Route: 041
     Dates: start: 20181217, end: 20181217

REACTIONS (3)
  - Pneumonitis [Recovered/Resolved with Sequelae]
  - Rash [Recovered/Resolved with Sequelae]
  - Constipation [Recovered/Resolved]

NARRATIVE: CASE EVENT DATE: 20181020
